FAERS Safety Report 4307002-4 (Version None)
Quarter: 2004Q1

REPORT INFORMATION
  Report Type: 
  Country: None (occurrence: None)
  Receive Date: 20040227
  Receipt Date: 20040227
  Transmission Date: 20041129
  Serious: Yes (Death, Life-Threatening)
  Sender: FDA-Public Use
  Company Number: None

PATIENT
  Age: 91 Year
  Sex: Female
  Weight: 77 kg

DRUGS (1)
  1. VANCOMYCIN [Suspect]
     Indication: DECUBITUS ULCER
     Dosage: 1 GM IV
     Route: 042
     Dates: start: 20040101

REACTIONS (7)
  - APNOEA [None]
  - CARDIO-RESPIRATORY ARREST [None]
  - CHILLS [None]
  - HYPOTENSION [None]
  - RESPIRATORY ARREST [None]
  - RESPIRATORY DISTRESS [None]
  - WHEEZING [None]
